FAERS Safety Report 14472611 (Version 16)
Quarter: 2023Q2

REPORT INFORMATION
  Report Type: Spontaneous
  Country: CA (occurrence: CA)
  Receive Date: 20180201
  Receipt Date: 20230425
  Transmission Date: 20230722
  Serious: Yes (Hospitalization, Other)
  Sender: FDA-Public Use
  Company Number: CA-009507513-1801CAN014527

PATIENT
  Age: 48 Year
  Sex: Female
  Weight: 106.9 kg

DRUGS (120)
  1. EMEND [Suspect]
     Active Substance: APREPITANT
     Indication: Supportive care
     Dosage: 80.0 MILLIGRAM; 1 EVERY 1 DAY(S) (QD)/ 80MG, 1X/DAY
     Route: 048
     Dates: start: 20170331, end: 20170401
  2. EMEND [Suspect]
     Active Substance: APREPITANT
     Indication: Product used for unknown indication
     Dosage: 125.0 MILLIGRAM; 1 EVERY 1 DAY(S) (QD)
     Route: 048
  3. EMEND [Suspect]
     Active Substance: APREPITANT
     Dosage: UNK, EVERY DAY
     Route: 048
  4. EMEND [Suspect]
     Active Substance: APREPITANT
     Dosage: UNK, EVERY DAY
     Route: 048
  5. EMEND [Suspect]
     Active Substance: APREPITANT
     Dosage: UNK, EVERY DAY
     Route: 048
  6. EMEND [Suspect]
     Active Substance: APREPITANT
     Dosage: UNK, EVERY DAY
     Route: 048
  7. EMEND [Suspect]
     Active Substance: APREPITANT
     Dosage: 125.0 MILLIGRAM; 1 EVERY 1 DAY(S) (QD)
     Route: 048
  8. EMEND [Suspect]
     Active Substance: APREPITANT
     Dosage: 125.0 MILLIGRAM; 1 EVERY 1 DAY(S) (QD)
     Route: 048
  9. EMEND [Suspect]
     Active Substance: APREPITANT
     Dosage: 125.0 MILLIGRAM; 1 EVERY 1 DAY(S) (QD)
     Route: 048
  10. EMEND [Suspect]
     Active Substance: APREPITANT
     Dosage: 125.0 MILLIGRAM; 1 EVERY 1 DAY(S) (QD)
     Route: 048
  11. EMEND [Suspect]
     Active Substance: APREPITANT
     Dosage: 125.0 MILLIGRAM; 1 EVERY 1 DAY(S) (QD)
     Route: 048
  12. EMEND [Suspect]
     Active Substance: APREPITANT
     Dosage: 80.0 MILLIGRAM; 1 EVERY 1 DAY(S) (QD)/ 80MG, UNK
     Route: 048
  13. EMEND [Suspect]
     Active Substance: APREPITANT
     Dosage: 80.0 MILLIGRAM; 1 EVERY 1 DAY(S) (QD)/ 80MG, UNK
     Route: 048
  14. EMEND [Suspect]
     Active Substance: APREPITANT
     Dosage: 80.0 MILLIGRAM; 1 EVERY 1 DAY(S) (QD)/ 80MG, UNK
     Route: 048
  15. EMEND [Suspect]
     Active Substance: APREPITANT
     Dosage: 80.0 MILLIGRAM; 1 EVERY 1 DAY(S) (QD)/ 80MG, UNK
     Route: 048
  16. EMEND [Suspect]
     Active Substance: APREPITANT
     Dosage: 80.0 MILLIGRAM; 1 EVERY 1 DAY(S) (QD)/ 80MG, UNK
     Route: 048
  17. EMEND [Suspect]
     Active Substance: APREPITANT
     Dosage: 80.0 MILLIGRAM; 1 EVERY 1 DAY(S) (QD)/ 80MG, UNK
     Route: 048
  18. EMEND [Suspect]
     Active Substance: APREPITANT
     Dosage: 80.0 MILLIGRAM; 1 EVERY 1 DAY(S) (QD)/ 80MG, UNK
     Route: 048
  19. EMEND [Suspect]
     Active Substance: APREPITANT
     Dosage: 80.0 MILLIGRAM; 1 EVERY 1 DAY(S) (QD)/ 80MG, UNK
     Route: 048
  20. EMEND [Suspect]
     Active Substance: APREPITANT
     Dosage: 80.0 MILLIGRAM; 1 EVERY 1 DAY(S) (QD)/ 80MG, UNK
     Route: 048
  21. EMEND [Suspect]
     Active Substance: APREPITANT
     Dosage: 125 UNK
     Route: 048
  22. EMEND [Suspect]
     Active Substance: APREPITANT
     Dosage: 125 UNK
     Route: 048
  23. CYCLOPHOSPHAMIDE [Suspect]
     Active Substance: CYCLOPHOSPHAMIDE
     Indication: Breast cancer
     Dosage: 1360 MG, 1 EVERY 2 WEEKS
     Route: 042
  24. CYCLOPHOSPHAMIDE [Suspect]
     Active Substance: CYCLOPHOSPHAMIDE
     Indication: Tardive dyskinesia
     Dosage: UNK
     Route: 042
  25. CYCLOPHOSPHAMIDE [Suspect]
     Active Substance: CYCLOPHOSPHAMIDE
     Dosage: 1360 MG, 1 EVERY 2 WEEKS
     Route: 042
  26. CYCLOPHOSPHAMIDE [Suspect]
     Active Substance: CYCLOPHOSPHAMIDE
     Dosage: 1360 MG, 1 EVERY 2 WEEKS
     Route: 042
  27. CYCLOPHOSPHAMIDE [Suspect]
     Active Substance: CYCLOPHOSPHAMIDE
     Dosage: 1360 MG
     Route: 042
  28. CYCLOPHOSPHAMIDE [Suspect]
     Active Substance: CYCLOPHOSPHAMIDE
     Dosage: UNK
     Route: 042
  29. PACLITAXEL [Suspect]
     Active Substance: PACLITAXEL
     Indication: Breast cancer
     Dosage: 303 MILLIGRAM
     Route: 042
  30. PACLITAXEL [Suspect]
     Active Substance: PACLITAXEL
     Indication: Supportive care
     Dosage: 243MILLIGRAM,QD
     Route: 042
  31. PACLITAXEL [Suspect]
     Active Substance: PACLITAXEL
     Dosage: 393 MILLIGRAM, QD
     Route: 042
  32. PACLITAXEL [Suspect]
     Active Substance: PACLITAXEL
     Dosage: 303 MILLIGRAM,
     Route: 042
  33. PACLITAXEL [Suspect]
     Active Substance: PACLITAXEL
     Dosage: 393 MILLIGRAM,
     Route: 042
  34. PACLITAXEL [Suspect]
     Active Substance: PACLITAXEL
     Dosage: 243MILLIGRAM
     Route: 042
  35. PACLITAXEL [Suspect]
     Active Substance: PACLITAXEL
     Dosage: 303 MILLIGRAM,
     Route: 042
  36. PACLITAXEL [Suspect]
     Active Substance: PACLITAXEL
     Dosage: 393 MILLIGRAM,
     Route: 042
  37. ENOXAPARIN [Suspect]
     Active Substance: ENOXAPARIN
     Indication: Tardive dyskinesia
     Dosage: 150.0 MILLIGRAM; 1 EVERY 1 DAY(S) (QD)/ 150MG 1X/DAY
     Route: 058
     Dates: start: 20161222
  38. ENOXAPARIN [Suspect]
     Active Substance: ENOXAPARIN
     Dosage: UNK
     Route: 058
  39. ENOXAPARIN [Suspect]
     Active Substance: ENOXAPARIN
     Dosage: 150.0 MILLIGRAM; 1 EVERY 1 DAY(S) (QD)/ 150MG 1X/DAY
     Route: 058
     Dates: start: 20161222
  40. ENOXAPARIN [Suspect]
     Active Substance: ENOXAPARIN
     Dosage: 150.0 MILLIGRAM; 1 EVERY 1 DAY(S) (QD)/ 150MG 1X/DAY
     Route: 058
     Dates: start: 20161222
  41. LEVOFLOXACIN [Suspect]
     Active Substance: LEVOFLOXACIN
     Indication: Tardive dyskinesia
     Dosage: 500.0 MILLIGRAM; 1 EVERY 1 DAY(S) (QD), DOSAGE FORM NOT SPECIFIED
     Route: 048
     Dates: start: 20170209
  42. LEVOFLOXACIN [Suspect]
     Active Substance: LEVOFLOXACIN
     Dosage: 500.0 MG
     Route: 048
  43. LEVOFLOXACIN [Suspect]
     Active Substance: LEVOFLOXACIN
     Dosage: 500.0 MILLIGRAM; 1 EVERY 1 DAY(S) (QD), DOSAGE FORM NOT SPECIFIED
     Route: 048
  44. LEVOFLOXACIN [Suspect]
     Active Substance: LEVOFLOXACIN
     Dosage: 500.0 MILLIGRAM; 1 EVERY 1 DAY(S) (QD), DOSAGE FORM NOT SPECIFIED
     Route: 048
  45. LORAZEPAM [Suspect]
     Active Substance: LORAZEPAM
     Indication: Tardive dyskinesia
     Dosage: 0.5 MILLIGRAM , 2 EVERY 1 DAYS / 0.5 MG 2X/DAY
     Route: 048
     Dates: start: 20170123
  46. LORAZEPAM [Suspect]
     Active Substance: LORAZEPAM
     Dosage: 0.5 MILLIGRAM , EVERY 12 HOURS (Q12H)
     Route: 048
     Dates: start: 20170123
  47. LORAZEPAM [Suspect]
     Active Substance: LORAZEPAM
     Dosage: 0.5 MILLIGRAM , 2 EVERY 1 DAYS / 0.5 MG 2X/DAY
     Route: 048
     Dates: start: 20170123
  48. LORAZEPAM [Suspect]
     Active Substance: LORAZEPAM
     Dosage: 0.5 MILLIGRAM , 1 EVERY 1 DAYS(QD)
     Route: 048
     Dates: start: 20170123
  49. METOCLOPRAMIDE [Suspect]
     Active Substance: METOCLOPRAMIDE
     Indication: Tardive dyskinesia
     Dosage: 10 MILLIGRAM, 4 EVERY 1 DAY (QID)
     Route: 048
  50. METOCLOPRAMIDE [Suspect]
     Active Substance: METOCLOPRAMIDE
     Dosage: 10 MILLIGRAM, 4 EVERY 1 DAY (QID)
     Route: 048
  51. METOCLOPRAMIDE [Suspect]
     Active Substance: METOCLOPRAMIDE
     Dosage: 10 MILLIGRAM, 4 EVERY 1 DAY (QID)
     Route: 048
  52. METOCLOPRAMIDE [Suspect]
     Active Substance: METOCLOPRAMIDE
     Dosage: 10 MILLIGRAM, 1 EVERY 1 DAY (QD)
     Route: 048
  53. METOCLOPRAMIDE [Suspect]
     Active Substance: METOCLOPRAMIDE
     Dosage: 10 MILLIGRAM, 1 EVERY 6 HOURS(Q6H)
     Route: 048
  54. RANITIDINE HYDROCHLORIDE [Suspect]
     Active Substance: RANITIDINE HYDROCHLORIDE
     Indication: Tardive dyskinesia
     Dosage: 150 MILLIGRAM, 2 EVERY 1 DAY
     Route: 048
  55. RANITIDINE HYDROCHLORIDE [Suspect]
     Active Substance: RANITIDINE HYDROCHLORIDE
     Dosage: 150 MILLIGRAM, 1 EVERY 2 WEEKS (CYCLICAL)
     Route: 048
     Dates: start: 20170112
  56. RANITIDINE HYDROCHLORIDE [Suspect]
     Active Substance: RANITIDINE HYDROCHLORIDE
     Dosage: 2 EVERY 1 DAY
     Route: 048
  57. RANITIDINE HYDROCHLORIDE [Suspect]
     Active Substance: RANITIDINE HYDROCHLORIDE
     Dosage: 150 MILLIGRAM, 1 EVERY 12 HOURS
     Route: 048
  58. RANITIDINE HYDROCHLORIDE [Suspect]
     Active Substance: RANITIDINE HYDROCHLORIDE
     Dosage: 2 EVERY 1 DAY
     Route: 048
  59. RANITIDINE HYDROCHLORIDE [Suspect]
     Active Substance: RANITIDINE HYDROCHLORIDE
     Dosage: 2 EVERY 1 DAY
     Route: 048
  60. RANITIDINE HYDROCHLORIDE [Suspect]
     Active Substance: RANITIDINE HYDROCHLORIDE
     Dosage: 150 MG 2 EVERY 1 DAY; 150 MG 2X/DAY
     Route: 048
  61. RANITIDINE HYDROCHLORIDE [Suspect]
     Active Substance: RANITIDINE HYDROCHLORIDE
     Dosage: 150 MILLIGRAM, 2 EVERY 1 DAY
     Route: 048
  62. TRASTUZUMAB [Suspect]
     Active Substance: TRASTUZUMAB
     Indication: Tardive dyskinesia
     Dosage: 626.0 MILLIGRAM
     Route: 065
  63. TRASTUZUMAB [Suspect]
     Active Substance: TRASTUZUMAB
     Dosage: 866.0 MILLIGRAM,QD
     Route: 065
     Dates: start: 20170330
  64. TRASTUZUMAB [Suspect]
     Active Substance: TRASTUZUMAB
     Dosage: UNK
     Route: 048
  65. TRASTUZUMAB [Suspect]
     Active Substance: TRASTUZUMAB
     Dosage: 626.0 MILLIGRAM
     Route: 065
  66. TRASTUZUMAB [Suspect]
     Active Substance: TRASTUZUMAB
     Dosage: 626.0 MILLIGRAM
     Route: 065
  67. TRASTUZUMAB [Suspect]
     Active Substance: TRASTUZUMAB
     Dosage: 626.0 MILLIGRAM
     Route: 065
  68. TRASTUZUMAB [Suspect]
     Active Substance: TRASTUZUMAB
     Dosage: 866.0 MILLIGRAM,QD
     Route: 065
     Dates: start: 20170330
  69. TRASTUZUMAB [Suspect]
     Active Substance: TRASTUZUMAB
     Dosage: 866.0 MILLIGRAM,QD
     Route: 065
     Dates: start: 20170330
  70. TRASTUZUMAB [Suspect]
     Active Substance: TRASTUZUMAB
     Dosage: UNK
  71. TRASTUZUMAB [Suspect]
     Active Substance: TRASTUZUMAB
     Dosage: UNK
  72. DEXAMETHASONE [Suspect]
     Active Substance: DEXAMETHASONE
     Indication: Supportive care
     Dosage: 20.0 MILLIGRAM; 1 EVERY 1 DAY(S) (QD) DOSAGE FORM: NOT SPECIFIED/ 20MG 1X/DAY
     Route: 048
     Dates: start: 20170329, end: 20170330
  73. DEXAMETHASONE [Suspect]
     Active Substance: DEXAMETHASONE
     Dosage: 20.0 MILLIGRAM; 1 EVERY 1 DAY(S) (QD)
     Route: 048
  74. DEXAMETHASONE [Suspect]
     Active Substance: DEXAMETHASONE
     Dosage: 20.0 MILLIGRAM; 1 EVERY 1 DAY(S) (QD)
     Route: 048
  75. DEXAMETHASONE [Suspect]
     Active Substance: DEXAMETHASONE
     Dosage: 20.0 MILLIGRAM; 1 EVERY 1 DAY(S) (QD)
     Route: 048
  76. DEXAMETHASONE [Suspect]
     Active Substance: DEXAMETHASONE
     Dosage: 20.0 MILLIGRAM; 1 EVERY 1 DAY(S) (QD)
     Route: 048
  77. DEXAMETHASONE [Suspect]
     Active Substance: DEXAMETHASONE
     Dosage: UNK
     Route: 048
  78. DEXAMETHASONE [Suspect]
     Active Substance: DEXAMETHASONE
     Dosage: 20.0 MILLIGRAM; 1 EVERY 1 DAY(S) (QD)
  79. DEXAMETHASONE [Suspect]
     Active Substance: DEXAMETHASONE
     Dosage: UNK
  80. ACETAMINOPHEN\CODEINE PHOSPHATE [Suspect]
     Active Substance: ACETAMINOPHEN\CODEINE PHOSPHATE
     Indication: Tardive dyskinesia
     Dosage: 30 MILLIGRAM, QD
  81. ACETAMINOPHEN\CODEINE PHOSPHATE [Suspect]
     Active Substance: ACETAMINOPHEN\CODEINE PHOSPHATE
     Dosage: UNK
  82. ACETAMINOPHEN\CODEINE PHOSPHATE [Suspect]
     Active Substance: ACETAMINOPHEN\CODEINE PHOSPHATE
     Dosage: 30 MILLIGRAM, QD
  83. ACETAMINOPHEN\CODEINE PHOSPHATE [Suspect]
     Active Substance: ACETAMINOPHEN\CODEINE PHOSPHATE
     Dosage: 30 MILLIGRAM, Q4H
  84. ACETAMINOPHEN\CODEINE PHOSPHATE [Suspect]
     Active Substance: ACETAMINOPHEN\CODEINE PHOSPHATE
     Dosage: 30 MILLIGRAM, Q4H
  85. ACETAMINOPHEN\CODEINE PHOSPHATE [Suspect]
     Active Substance: ACETAMINOPHEN\CODEINE PHOSPHATE
     Dosage: 30 MILLIGRAM, QD
  86. ACETAMINOPHEN\CODEINE PHOSPHATE [Suspect]
     Active Substance: ACETAMINOPHEN\CODEINE PHOSPHATE
     Dosage: 30 MILLIGRAM, Q4H
  87. BETAMETHASONE [Suspect]
     Active Substance: BETAMETHASONE
     Indication: Tardive dyskinesia
     Dosage: 2 DOSAGE FORM, QD
  88. BETAMETHASONE [Suspect]
     Active Substance: BETAMETHASONE
     Dosage: UNK, Q12H
     Route: 048
  89. BETAMETHASONE [Suspect]
     Active Substance: BETAMETHASONE
     Dosage: UNK
     Route: 048
  90. DOXORUBICIN [Suspect]
     Active Substance: DOXORUBICIN
     Indication: Breast cancer
     Dosage: 136 MILLIGRAM, 1 EVERY 2 WEEKS
     Route: 042
  91. DOXORUBICIN [Suspect]
     Active Substance: DOXORUBICIN
     Dosage: 136 MILLIGRAM
     Route: 042
  92. DOXORUBICIN [Suspect]
     Active Substance: DOXORUBICIN
     Dosage: 136 MILLIGRAM, 1 EVERY 2 WEEKS
     Route: 042
  93. DOXORUBICIN [Suspect]
     Active Substance: DOXORUBICIN
     Dosage: UNK
     Route: 042
  94. DOXORUBICIN [Suspect]
     Active Substance: DOXORUBICIN
     Dosage: 136 MILLIGRAM, 1 EVERY 2 WEEKS
     Route: 042
  95. NEULASTA [Suspect]
     Active Substance: PEGFILGRASTIM
     Indication: Supportive care
     Dosage: 6 MILLIGRAM, 1 EVERY DAY (QD)
     Route: 058
  96. NEULASTA [Suspect]
     Active Substance: PEGFILGRASTIM
     Dosage: 6 MILLIGRAM, 1 EVERY DAY (QD)
     Route: 058
  97. NEULASTA [Suspect]
     Active Substance: PEGFILGRASTIM
     Dosage: 6 MILLIGRAM, 1 EVERY DAY (QD)
     Route: 058
  98. NEULASTA [Suspect]
     Active Substance: PEGFILGRASTIM
     Dosage: 6 MILLIGRAM, 1 EVERY DAY (QD)
     Route: 058
  99. NEULASTA [Suspect]
     Active Substance: PEGFILGRASTIM
     Dosage: 6 MILLIGRAM, 1 EVERY DAY (QD)
     Route: 058
  100. NEULASTA [Suspect]
     Active Substance: PEGFILGRASTIM
     Dosage: 6 MILLIGRAM, 1 EVERY DAY (QD)
     Route: 058
  101. NEULASTA [Suspect]
     Active Substance: PEGFILGRASTIM
     Dosage: 6 MILLIGRAM, 1 EVERY DAY (QD)
     Route: 058
  102. NEUPOGEN [Suspect]
     Active Substance: FILGRASTIM
     Indication: Supportive care
     Dosage: 480 MILLIGRAM, QD
     Route: 048
  103. NEUPOGEN [Suspect]
     Active Substance: FILGRASTIM
     Dosage: 480 MILLIGRAM, QD
  104. NEUPOGEN [Suspect]
     Active Substance: FILGRASTIM
     Dosage: 480 MILLIGRAM, QD
  105. NEUPOGEN [Suspect]
     Active Substance: FILGRASTIM
     Dosage: 480 MILLIGRAM, QD
  106. NEUPOGEN [Suspect]
     Active Substance: FILGRASTIM
     Dosage: 125 MILLIGRAM, QD
     Route: 048
  107. NEUPOGEN [Suspect]
     Active Substance: FILGRASTIM
     Dosage: 480 MILLIGRAM, QD
  108. ONDANSETRON [Suspect]
     Active Substance: ONDANSETRON
     Indication: Supportive care
     Dosage: 8 MILLIGRAM
     Route: 048
  109. ONDANSETRON [Suspect]
     Active Substance: ONDANSETRON
     Dosage: 8 MILLIGRAM
     Route: 048
  110. ONDANSETRON [Suspect]
     Active Substance: ONDANSETRON
     Dosage: 8 MILLIGRAM
     Route: 048
  111. ONDANSETRON [Suspect]
     Active Substance: ONDANSETRON
     Dosage: 8 UNK
  112. ONDANSETRON [Suspect]
     Active Substance: ONDANSETRON
     Dosage: UNK MILLIGRAM
     Route: 048
  113. ONDANSETRON [Suspect]
     Active Substance: ONDANSETRON
     Dosage: 8 MILLIGRAM
     Route: 048
  114. ONDANSETRON [Suspect]
     Active Substance: ONDANSETRON
     Dosage: 8 MILLIGRAM
     Route: 048
  115. ONDANSETRON [Suspect]
     Active Substance: ONDANSETRON
     Dosage: 8 MILLIGRAM, QD
     Route: 048
  116. ONDANSETRON [Suspect]
     Active Substance: ONDANSETRON
     Dosage: 8 MILLIGRAM
     Route: 048
  117. ONDANSETRON [Suspect]
     Active Substance: ONDANSETRON
     Dosage: 8 MILLIGRAM
     Route: 048
  118. ONDANSETRON [Suspect]
     Active Substance: ONDANSETRON
     Dosage: 8 MILLIGRAM, QD
     Route: 048
  119. ONDANSETRON [Suspect]
     Active Substance: ONDANSETRON
     Dosage: 8 MILLIGRAM
     Route: 048
  120. ONDANSETRON [Suspect]
     Active Substance: ONDANSETRON
     Dosage: 8 MILLIGRAM
     Route: 048

REACTIONS (12)
  - Atelectasis [Unknown]
  - Computerised tomogram thorax [Unknown]
  - Computerised tomogram thorax abnormal [Unknown]
  - Cough [Recovered/Resolved]
  - Dyspnoea [Recovered/Resolved]
  - Fatigue [Recovered/Resolved]
  - Gastrointestinal disorder [Recovered/Resolved]
  - Hypoxia [Recovered/Resolved]
  - Nausea [Recovered/Resolved]
  - Off label use [Unknown]
  - Pyrexia [Recovered/Resolved]
  - Rash [Unknown]

NARRATIVE: CASE EVENT DATE: 20170203
